FAERS Safety Report 10651816 (Version 2)
Quarter: 2014Q4

REPORT INFORMATION
  Report Type: Spontaneous
  Country: DE (occurrence: DE)
  Receive Date: 20141215
  Receipt Date: 20141222
  Transmission Date: 20150529
  Serious: Yes (Hospitalization, Other)
  Sender: FDA-Public Use
  Company Number: DE-PFIZER INC-2014341889

PATIENT
  Age: 57 Year
  Sex: Male
  Weight: 60 kg

DRUGS (10)
  1. IBUPROFEN. [Suspect]
     Active Substance: IBUPROFEN
     Dosage: 12 G, SINGLE
     Route: 048
     Dates: start: 20141206, end: 20141206
  2. THYME OIL [Suspect]
     Active Substance: THYME
     Dosage: 25 ML, SINGLE
     Route: 048
     Dates: start: 20141206, end: 20141206
  3. DICLOFENAC [Suspect]
     Active Substance: DICLOFENAC
     Dosage: 500 MG, SINGLE
     Route: 048
     Dates: start: 20141206, end: 20141206
  4. DOXEPIN [Suspect]
     Active Substance: DOXEPIN
     Dosage: UNK
     Route: 048
     Dates: start: 20141206, end: 20141206
  5. OLANZAPINE. [Suspect]
     Active Substance: OLANZAPINE
     Dosage: 25 ML, SINGLE
     Route: 048
     Dates: start: 20141206, end: 20141206
  6. PEPPERMINT OIL [Suspect]
     Active Substance: PEPPERMINT OIL
     Dosage: 15 ML, SINGLE
     Route: 048
     Dates: start: 20141206, end: 20141206
  7. PANTOZOL [Suspect]
     Active Substance: PANTOPRAZOLE SODIUM
     Dosage: 120 MG, SINGLE
     Route: 048
     Dates: start: 20141206, end: 20141206
  8. ACICLOVIR [Suspect]
     Active Substance: ACYCLOVIR
     Dosage: 3.75 G, SINGLE
     Route: 048
     Dates: start: 20141206, end: 20141206
  9. CICLOPIROX. [Suspect]
     Active Substance: CICLOPIROX
     Dosage: 250 MG, SINGLE
     Route: 048
     Dates: start: 20141206, end: 20141206
  10. NOVAMINSULFON [Suspect]
     Active Substance: METAMIZOLE
     Dosage: 25 G, SINGLE
     Route: 048

REACTIONS (6)
  - Coma [Recovering/Resolving]
  - Respiratory failure [Recovering/Resolving]
  - Overdose [Recovering/Resolving]
  - Alcohol poisoning [Recovering/Resolving]
  - Miosis [Recovering/Resolving]
  - Suicide attempt [Recovering/Resolving]

NARRATIVE: CASE EVENT DATE: 20141206
